FAERS Safety Report 18390504 (Version 1)
Quarter: 2020Q4

REPORT INFORMATION
  Report Type: Report from Study
  Country: FR (occurrence: FR)
  Receive Date: 20201015
  Receipt Date: 20201015
  Transmission Date: 20210114
  Serious: Yes (Hospitalization)
  Sender: FDA-Public Use
  Company Number: FR-EXELIXIS-XL18420032154

PATIENT
  Age: 45 Year
  Sex: Male
  Weight: 71 kg

DRUGS (7)
  1. ATEZOLIZUMAB. [Suspect]
     Active Substance: ATEZOLIZUMAB
     Indication: HEAD AND NECK CANCER
     Dosage: 1200 MG, Q3WEEKS
     Route: 042
     Dates: start: 20200720
  2. DUROGESIC [Concomitant]
     Active Substance: FENTANYL
  3. PARACETAMOL [Concomitant]
     Active Substance: ACETAMINOPHEN
  4. BICARBONATE [Concomitant]
     Active Substance: SODIUM BICARBONATE
  5. XL184 [Suspect]
     Active Substance: CABOZANTINIB
     Indication: HEAD AND NECK CANCER
     Dosage: 40 MG, QD
     Route: 048
     Dates: start: 20200720
  6. L-THYROXINE [Concomitant]
     Active Substance: LEVOTHYROXINE
  7. OXYNORMORO [Concomitant]
     Active Substance: OXYCODONE HYDROCHLORIDE

REACTIONS (1)
  - Vascular pseudoaneurysm [Recovered/Resolved]

NARRATIVE: CASE EVENT DATE: 20200812
